FAERS Safety Report 5937813-0 (Version None)
Quarter: 2008Q4

REPORT INFORMATION
  Report Type: 
  Country: None (occurrence: None)
  Receive Date: 20081029
  Receipt Date: 20081023
  Transmission Date: 20090506
  Serious: Yes (Life-Threatening, Other)
  Sender: FDA-Public Use
  Company Number: 2008SP009700

PATIENT
  Age: 70 Year
  Sex: Female
  Weight: 51 kg

DRUGS (16)
  1. TEMODAL [Suspect]
     Indication: GLIOBLASTOMA MULTIFORME
     Dosage: 150 MG/M2; QD; PO, 200 MG/M2; QD; PO, ;PO
     Route: 048
     Dates: start: 20061120, end: 20061124
  2. TEMODAL [Suspect]
     Indication: GLIOBLASTOMA MULTIFORME
     Dosage: 150 MG/M2; QD; PO, 200 MG/M2; QD; PO, ;PO
     Route: 048
     Dates: start: 20061218, end: 20061222
  3. TEMODAL [Suspect]
     Indication: GLIOBLASTOMA MULTIFORME
     Dosage: 150 MG/M2; QD; PO, 200 MG/M2; QD; PO, ;PO
     Route: 048
     Dates: start: 20070122, end: 20070126
  4. TEMODAL [Suspect]
     Indication: GLIOBLASTOMA MULTIFORME
     Dosage: 150 MG/M2; QD; PO, 200 MG/M2; QD; PO, ;PO
     Route: 048
     Dates: start: 20070219, end: 20070223
  5. TEMODAL [Suspect]
     Indication: GLIOBLASTOMA MULTIFORME
     Dosage: 150 MG/M2; QD; PO, 200 MG/M2; QD; PO, ;PO
     Route: 048
     Dates: start: 20070326, end: 20070330
  6. TEMODAL [Suspect]
     Indication: GLIOBLASTOMA MULTIFORME
     Dosage: 150 MG/M2; QD; PO, 200 MG/M2; QD; PO, ;PO
     Route: 048
     Dates: start: 20070423, end: 20070427
  7. TEMODAL [Suspect]
     Indication: GLIOBLASTOMA MULTIFORME
     Dosage: 150 MG/M2; QD; PO, 200 MG/M2; QD; PO, ;PO
     Route: 048
     Dates: start: 20070521, end: 20070525
  8. TEMODAL [Suspect]
     Indication: GLIOBLASTOMA MULTIFORME
     Dosage: 150 MG/M2; QD; PO, 200 MG/M2; QD; PO, ;PO
     Route: 048
     Dates: start: 20070618, end: 20070622
  9. TEMODAL [Suspect]
     Indication: GLIOBLASTOMA MULTIFORME
     Dosage: 150 MG/M2; QD; PO, 200 MG/M2; QD; PO, ;PO
     Route: 048
     Dates: start: 20070716, end: 20070720
  10. TEMODAL [Suspect]
     Indication: GLIOBLASTOMA MULTIFORME
     Dosage: 150 MG/M2; QD; PO, 200 MG/M2; QD; PO, ;PO
     Route: 048
     Dates: start: 20070813, end: 20070817
  11. TEMODAL [Suspect]
     Indication: GLIOBLASTOMA MULTIFORME
     Dosage: 150 MG/M2; QD; PO, 200 MG/M2; QD; PO, ;PO
     Route: 048
     Dates: start: 20070910, end: 20070914
  12. TEMODAL [Suspect]
     Indication: GLIOBLASTOMA MULTIFORME
     Dosage: 150 MG/M2; QD; PO, 200 MG/M2; QD; PO, ;PO
     Route: 048
     Dates: start: 20071008, end: 20071012
  13. PRAMEVAN [Concomitant]
  14. ALOSITOL [Concomitant]
  15. GLIMEPIRIDE [Concomitant]
  16. NOVORAPID MIX [Concomitant]

REACTIONS (5)
  - DISEASE PROGRESSION [None]
  - GLIOBLASTOMA MULTIFORME [None]
  - MENINGIOMA [None]
  - PYELONEPHRITIS [None]
  - PYREXIA [None]
